FAERS Safety Report 22153610 (Version 1)
Quarter: 2023Q1

REPORT INFORMATION
  Report Type: Spontaneous
  Country: US (occurrence: US)
  Receive Date: 20230330
  Receipt Date: 20230330
  Transmission Date: 20230417
  Serious: No
  Sender: FDA-Public Use
  Company Number: US-BION-010976

PATIENT

DRUGS (1)
  1. ALEVE [Suspect]
     Active Substance: NAPROXEN SODIUM
     Indication: Sciatica
     Route: 065

REACTIONS (2)
  - Incorrect dose administered [Not Recovered/Not Resolved]
  - Drug effective for unapproved indication [Not Recovered/Not Resolved]
